FAERS Safety Report 5149923-9 (Version None)
Quarter: 2006Q4

REPORT INFORMATION
  Report Type: 
  Country: None (occurrence: None)
  Receive Date: 20061113
  Receipt Date: 20061107
  Transmission Date: 20070319
  Serious: Yes (Hospitalization)
  Sender: FDA-Public Use
  Company Number: DE-ROXANE LABORATORIES, INC-2006-BP-12991RO

PATIENT
  Age: 35 Year
  Sex: Female

DRUGS (1)
  1. TAMOXIFEN CITRATE [Suspect]
     Indication: BREAST CANCER

REACTIONS (7)
  - ABDOMINAL PAIN LOWER [None]
  - OESTRADIOL INCREASED [None]
  - OVARIAN CYST [None]
  - OVARIAN CYST TORSION [None]
  - OVARIAN HYPERSTIMULATION SYNDROME [None]
  - OVARIAN NECROSIS [None]
  - REFUSAL OF TREATMENT BY PATIENT [None]
